FAERS Safety Report 12467119 (Version 1)
Quarter: 2016Q2

REPORT INFORMATION
  Report Type: Report from Study
  Country: AR (occurrence: AR)
  Receive Date: 20160615
  Receipt Date: 20160615
  Transmission Date: 20160815
  Serious: Yes (Congenital Anomaly, Other)
  Sender: FDA-Public Use
  Company Number: AR-HETERO LABS LTD-1053809

PATIENT
  Sex: Female
  Weight: 2 kg

DRUGS (7)
  1. TMP-SMX [Concomitant]
     Active Substance: SULFAMETHOXAZOLE\TRIMETHOPRIM
  2. ISENTRESS [Concomitant]
     Active Substance: RALTEGRAVIR POTASSIUM
     Route: 064
  3. VIREAD ACCESS [Concomitant]
     Active Substance: TENOFOVIR DISOPROXIL FUMARATE
     Route: 064
  4. NORVIR [Concomitant]
     Active Substance: RITONAVIR
     Route: 064
  5. REYATAZ [Concomitant]
     Active Substance: ATAZANAVIR SULFATE
     Route: 064
  6. LAMIVUDINE. [Suspect]
     Active Substance: LAMIVUDINE
     Indication: HIV INFECTION
     Route: 064
  7. MARIJUANA [Concomitant]
     Active Substance: CANNABIS SATIVA SUBSP. INDICA TOP
     Route: 064

REACTIONS (2)
  - Ventricular septal defect [Unknown]
  - Foetal exposure during pregnancy [Unknown]
